FAERS Safety Report 15041183 (Version 3)
Quarter: 2018Q3

REPORT INFORMATION
  Report Type: Report from Study
  Country: CA (occurrence: CA)
  Receive Date: 20180621
  Receipt Date: 20180808
  Transmission Date: 20181010
  Serious: Yes (Other)
  Sender: FDA-Public Use
  Company Number: CA-ROCHE-2101198

PATIENT
  Sex: Male

DRUGS (5)
  1. CRESTOR [Concomitant]
     Active Substance: ROSUVASTATIN CALCIUM
  2. RAMIPRIL. [Concomitant]
     Active Substance: RAMIPRIL
  3. ESBRIET [Suspect]
     Active Substance: PIRFENIDONE
     Indication: IDIOPATHIC PULMONARY FIBROSIS
     Route: 048
     Dates: start: 20180308, end: 2018
  4. LASIX [Concomitant]
     Active Substance: FUROSEMIDE
  5. PRADAX [Concomitant]
     Active Substance: DABIGATRAN ETEXILATE MESYLATE

REACTIONS (3)
  - Abdominal discomfort [Unknown]
  - Incontinence [Unknown]
  - Heart rate decreased [Unknown]
